FAERS Safety Report 4364905-2 (Version None)
Quarter: 2004Q2

REPORT INFORMATION
  Report Type: 
  Country: None (occurrence: None)
  Receive Date: 20040525
  Receipt Date: 20040525
  Transmission Date: 20050107
  Serious: Yes (Hospitalization)
  Sender: FDA-Public Use
  Company Number: None

PATIENT
  Age: 46 Year
  Sex: Female
  Weight: 79.3795 kg

DRUGS (1)
  1. CYPHER OTW SIROLIMUS-ELUTING CORONARY STENT [Suspect]

REACTIONS (4)
  - CHILLS [None]
  - ERYTHEMA [None]
  - HYPERHIDROSIS [None]
  - TREMOR [None]
